FAERS Safety Report 25014362 (Version 1)
Quarter: 2025Q1

REPORT INFORMATION
  Report Type: Spontaneous
  Country: TR (occurrence: TR)
  Receive Date: 20250226
  Receipt Date: 20250226
  Transmission Date: 20250409
  Serious: Yes (Other)
  Sender: NOVARTIS
  Company Number: TR-002147023-NVSC2025TR029612

PATIENT
  Sex: Male

DRUGS (1)
  1. ALPELISIB [Suspect]
     Active Substance: ALPELISIB
     Indication: Lung carcinoma cell type unspecified stage IV
     Route: 065

REACTIONS (4)
  - Diabetic coma [Unknown]
  - Blood glucose increased [Unknown]
  - Aphasia [Unknown]
  - Off label use [Unknown]
